FAERS Safety Report 5160284-1 (Version None)
Quarter: 2006Q4

REPORT INFORMATION
  Report Type: 
  Country: None (occurrence: None)
  Receive Date: 20061129
  Receipt Date: 20061027
  Transmission Date: 20070319
  Serious: Yes (Hospitalization)
  Sender: FDA-Public Use
  Company Number: FR-GLAXOSMITHKLINE-B0444302A

PATIENT
  Age: 40 Year
  Sex: Male

DRUGS (6)
  1. TRIZIVIR [Suspect]
     Route: 048
     Dates: start: 20030617
  2. BACTRIM [Suspect]
     Route: 048
     Dates: start: 19961015
  3. MACROLIN [Suspect]
     Route: 042
     Dates: start: 20001016, end: 20021029
  4. VIDEX [Suspect]
     Route: 048
     Dates: start: 19980804, end: 20030619
  5. ZERIT [Suspect]
     Dosage: 60UNIT PER DAY
     Route: 048
     Dates: start: 19980804, end: 20030617
  6. KALETRA [Suspect]
     Dosage: 6UNIT PER DAY
     Route: 048
     Dates: start: 20011117, end: 20030617

REACTIONS (3)
  - B-CELL LYMPHOMA [None]
  - GASTRIC DISORDER [None]
  - HELICOBACTER INFECTION [None]
